FAERS Safety Report 8019042-2 (Version None)
Quarter: 2012Q1

REPORT INFORMATION
  Report Type: 
  Country: None (occurrence: None)
  Receive Date: 20120103
  Receipt Date: 20111222
  Transmission Date: 20120608
  Serious: Yes (Hospitalization, Other)
  Sender: FDA-Public Use
  Company Number: US-ELI_LILLY_AND_COMPANY-US201112007297

PATIENT
  Sex: Male

DRUGS (3)
  1. COGENTIN [Concomitant]
     Dosage: 2 MG, QD
  2. PROTONIX [Concomitant]
     Dosage: 40 MG, QD
  3. ZYPREXA RELPREVV [Suspect]
     Indication: BIPOLAR I DISORDER
     Dosage: 405 MG, UNK
     Route: 030

REACTIONS (5)
  - PARANOIA [None]
  - HOSPITALISATION [None]
  - DELUSION [None]
  - AGGRESSION [None]
  - MANIA [None]
